FAERS Safety Report 7948230-6 (Version None)
Quarter: 2011Q4

REPORT INFORMATION
  Report Type: 
  Country: None (occurrence: None)
  Receive Date: 20111130
  Receipt Date: 20111116
  Transmission Date: 20120403
  Serious: Yes (Death, Hospitalization, Other)
  Sender: FDA-Public Use
  Company Number: US-CELGENE-163-21880-11052603

PATIENT
  Sex: Male
  Weight: 67.056 kg

DRUGS (2)
  1. REVLIMID [Suspect]
     Dosage: 20 MILLIGRAM
     Route: 048
     Dates: start: 20100315
  2. REVLIMID [Suspect]
     Dosage: 20 MILLIGRAM
     Route: 048
     Dates: start: 20110413

REACTIONS (4)
  - NEPHROPATHY [None]
  - LUNG DISORDER [None]
  - HIP FRACTURE [None]
  - UPPER LIMB FRACTURE [None]
